FAERS Safety Report 7949758-5 (Version None)
Quarter: 2011Q4

REPORT INFORMATION
  Report Type: 
  Country: None (occurrence: None)
  Receive Date: 20111130
  Receipt Date: 20111125
  Transmission Date: 20120403
  Serious: Yes (Other)
  Sender: FDA-Public Use
  Company Number: PHHY2011PL91803

PATIENT
  Age: 52 Year
  Sex: Female

DRUGS (6)
  1. EVEROLIMUS [Suspect]
     Indication: RENAL TRANSPLANT
     Dosage: UNK UKN, UNK
     Dates: start: 20090501
  2. SIROLIMUS [Concomitant]
     Dosage: UNK UKN, UNK
     Dates: start: 20080101
  3. MYCOPHENOLATE MOFETIL [Suspect]
     Indication: RENAL TRANSPLANT
     Dosage: UNK UKN, UNK
  4. PREDNISONE TAB [Concomitant]
     Indication: IMMUNOSUPPRESSION
     Dosage: UNK UKN, UNK
  5. CYCLOSPORINE [Suspect]
     Indication: RENAL TRANSPLANT
     Dosage: UNK UKN, UNK
  6. TACROLIMUS [Concomitant]
     Dosage: UNK UKN, UNK
     Dates: start: 20060501

REACTIONS (7)
  - PROTEINURIA [None]
  - BLOOD CREATININE INCREASED [None]
  - EPSTEIN-BARR VIRUS ANTIBODY POSITIVE [None]
  - CENTRAL NERVOUS SYSTEM LESION [None]
  - FOCAL SEGMENTAL GLOMERULOSCLEROSIS [None]
  - EPSTEIN-BARR VIRUS ASSOCIATED LYMPHOPROLIFERATIVE DISORDER [None]
  - NERVOUS SYSTEM DISORDER [None]
